FAERS Safety Report 19559229 (Version 1)
Quarter: 2021Q3

REPORT INFORMATION
  Report Type: Spontaneous
  Country: US (occurrence: US)
  Receive Date: 20210715
  Receipt Date: 20210715
  Transmission Date: 20211014
  Serious: Yes (Death)
  Sender: FDA-Public Use
  Company Number: US-AMNEAL PHARMACEUTICALS-2021-AMRX-02806

PATIENT

DRUGS (5)
  1. DEXAMETHASONE SODIUM PHOSPHATE. [Suspect]
     Active Substance: DEXAMETHASONE SODIUM PHOSPHATE
     Dosage: CYCLE 9+: 20 MILLIGRAM, 1X/DAY, ON DAYS 1, 2, 8, 9, 15, 16, 22, 23
     Route: 065
  2. BORTEZOMIB. [Suspect]
     Active Substance: BORTEZOMIB
     Indication: PLASMA CELL MYELOMA
     Dosage: CYCLE1?8: 1.3 MILLIGRAM/SQ. METER, 1X/DAY, ON DAYS 1, 4, 8, 11
     Route: 065
  3. DEXAMETHASONE SODIUM PHOSPHATE. [Suspect]
     Active Substance: DEXAMETHASONE SODIUM PHOSPHATE
     Indication: PLASMA CELL MYELOMA
     Dosage: CYCLE1?8: 20 MILLIGRAM, 1X/DAY, ON DAYS 1, 2, 4, 5, 8, 9, 11, 12
     Route: 065
  4. BORTEZOMIB. [Suspect]
     Active Substance: BORTEZOMIB
     Dosage: CYCLE 9+: 1.3 MILLIGRAM/SQ. METER, 1X/DAY, ON DAYS 1, 8, 15, 22
     Route: 065
  5. VENETOCLAX. [Suspect]
     Active Substance: VENETOCLAX
     Indication: PLASMA CELL MYELOMA
     Dosage: 800 MILLIGRAM, DAILY
     Route: 065

REACTIONS (1)
  - Adverse event [Fatal]
